FAERS Safety Report 10222735 (Version 1)
Quarter: 2014Q2

REPORT INFORMATION
  Report Type: Spontaneous
  Country: FR (occurrence: FR)
  Receive Date: 20140606
  Receipt Date: 20140606
  Transmission Date: 20141212
  Serious: Yes (Congenital Anomaly)
  Sender: FDA-Public Use
  Company Number: FR-ABBVIE-14P-056-1243848-00

PATIENT
  Age: 1 Day
  Sex: Female
  Weight: 3.11 kg

DRUGS (7)
  1. NORVIR [Suspect]
     Indication: MATERNAL EXPOSURE TIMING UNSPECIFIED
     Route: 064
  2. DARUNAVIR [Suspect]
     Indication: MATERNAL EXPOSURE TIMING UNSPECIFIED
     Route: 064
  3. TRUVADA [Suspect]
     Indication: MATERNAL EXPOSURE TIMING UNSPECIFIED
     Route: 064
  4. SULFAMETHOXAZOLE, TRIMETHOPRIME (BACTRM ADULTES) [Suspect]
     Indication: PRODUCT USED FOR UNKNOWN INDICATION
     Route: 064
  5. FOLINATE DE CALCIUM (FOLINORAL) [Suspect]
     Indication: MATERNAL EXPOSURE TIMING UNSPECIFIED
     Route: 064
  6. PREDNISOLONE [Suspect]
     Indication: MATERNAL EXPOSURE TIMING UNSPECIFIED
     Route: 064
  7. AUGMENTIN [Suspect]
     Indication: MATERNAL EXPOSURE TIMING UNSPECIFIED
     Route: 064

REACTIONS (5)
  - Chondroma [Not Recovered/Not Resolved]
  - Foot deformity [Recovered/Resolved with Sequelae]
  - Finger deformity [Recovered/Resolved with Sequelae]
  - Foetal exposure during pregnancy [Unknown]
  - Maternal drugs affecting foetus [None]
